FAERS Safety Report 19250928 (Version 4)
Quarter: 2022Q1

REPORT INFORMATION
  Report Type: Report from Study
  Country: US (occurrence: US)
  Receive Date: 20210512
  Receipt Date: 20220117
  Transmission Date: 20220423
  Serious: Yes (Other)
  Sender: FDA-Public Use
  Company Number: US-TAKEDA-2021TUS029837

PATIENT
  Sex: Female

DRUGS (3)
  1. PARATHYROID HORMONE [Suspect]
     Active Substance: PARATHYROID HORMONE
     Indication: Hypoparathyroidism
     Dosage: 50 MICROGRAM, BID
     Route: 058
     Dates: start: 20150528
  2. PARATHYROID HORMONE [Suspect]
     Active Substance: PARATHYROID HORMONE
     Indication: Hypoparathyroidism
     Dosage: 50 MICROGRAM, BID
     Route: 058
     Dates: start: 20150528
  3. PARATHYROID HORMONE [Suspect]
     Active Substance: PARATHYROID HORMONE
     Indication: Hypoparathyroidism
     Dosage: 50 MICROGRAM, BID
     Route: 058
     Dates: start: 20150528

REACTIONS (7)
  - Cardiac failure congestive [Not Recovered/Not Resolved]
  - Pericardial effusion [Not Recovered/Not Resolved]
  - Nephrolithiasis [Recovering/Resolving]
  - Seizure [Unknown]
  - Blood calcium decreased [Recovering/Resolving]
  - Therapeutic product effect variable [Recovering/Resolving]
  - Tetany [Unknown]
